FAERS Safety Report 22154995 (Version 1)
Quarter: 2023Q1

REPORT INFORMATION
  Report Type: Spontaneous
  Country: US (occurrence: US)
  Receive Date: 20230330
  Receipt Date: 20230330
  Transmission Date: 20230418
  Serious: No
  Sender: FDA-Public Use
  Company Number: US-GSKCCFUS-Case-01660485_AE-93711

PATIENT
  Sex: Female

DRUGS (1)
  1. BENLYSTA [Suspect]
     Active Substance: BELIMUMAB
     Indication: Systemic lupus erythematosus
     Dosage: UNK UNK, Z EVERY 4 WEEKS
     Route: 042

REACTIONS (6)
  - Wheezing [Not Recovered/Not Resolved]
  - Cough [Not Recovered/Not Resolved]
  - Bronchospasm [Not Recovered/Not Resolved]
  - Dyspnoea [Not Recovered/Not Resolved]
  - Malaise [Unknown]
  - Condition aggravated [Unknown]
